FAERS Safety Report 17020541 (Version 1)
Quarter: 2019Q4

REPORT INFORMATION
  Report Type: Spontaneous
  Country: US (occurrence: US)
  Receive Date: 20191111
  Receipt Date: 20191111
  Transmission Date: 20200122
  Serious: Yes (Congenital Anomaly, Other)
  Sender: FDA-Public Use
  Company Number: None

PATIENT
  Age: 22 Year
  Sex: Male
  Weight: 58 kg

DRUGS (2)
  1. METROGEL [Suspect]
     Active Substance: METRONIDAZOLE
  2. METROGYL [Suspect]
     Active Substance: METRONIDAZOLE
     Dates: start: 20190611, end: 20190628

REACTIONS (1)
  - Chest pain [None]

NARRATIVE: CASE EVENT DATE: 20180709
